FAERS Safety Report 9856488 (Version 1)
Quarter: 2014Q1

REPORT INFORMATION
  Report Type: Spontaneous
  Country: FR (occurrence: FR)
  Receive Date: 20140130
  Receipt Date: 20140130
  Transmission Date: 20141002
  Serious: Yes (Other)
  Sender: FDA-Public Use
  Company Number: FR-TEVA-457408ISR

PATIENT
  Age: 81 Year
  Sex: Female

DRUGS (1)
  1. AZILECT 1 MG [Suspect]
     Dosage: 1 MILLIGRAM DAILY;
     Route: 048
     Dates: start: 20131015, end: 20131122

REACTIONS (2)
  - Hypertension [Not Recovered/Not Resolved]
  - Cardiac failure [Recovering/Resolving]
